FAERS Safety Report 8732900 (Version 8)
Quarter: 2012Q4

REPORT INFORMATION
  Report Type: 
  Country: NO (occurrence: NO)
  Receive Date: 20120820
  Receipt Date: 20121221
  Transmission Date: 20130627
  Serious: Yes (Other)
  Sender: FDA-Public Use
  Company Number: NO-PFIZER INC-2012199607

PATIENT
  Age: 68 Year
  Sex: Female

DRUGS (12)
  1. LANSOPRAZOLE [Suspect]
     Indication: GERD
     Dosage: 30 mg, 1x/day
     Route: 065
  2. LANSOPRAZOLE [Suspect]
     Indication: HIATAL HERNIA
  3. PANTOLOC [Suspect]
     Indication: GERD
     Dosage: 40 mg, 1x/day
     Route: 065
  4. PANTOLOC [Suspect]
     Indication: HIATAL HERNIA
  5. METFORMIN [Concomitant]
     Dosage: 500 mg, 1x/day
  6. GLIBENCLAMIDE [Concomitant]
     Dosage: 1.75 mg, 1x/day
  7. METOCLOPRAMIDE [Concomitant]
     Dosage: 10 mg, 1x/day
  8. FLUNITRAZEPAM [Concomitant]
     Dosage: 1 mg, 1x/day
  9. DIAZEPAM [Concomitant]
     Dosage: 5 mg, 1x/day
  10. PARACETAMOL [Concomitant]
     Dosage: 1 g, 1x/day
  11. AMLODIPINE [Concomitant]
     Dosage: 10 mg, 1x/day
  12. LEVOTHYROXINE [Concomitant]
     Dosage: 50 ug, 1x/day

REACTIONS (5)
  - Neuroendocrine tumour [Recovered/Resolved]
  - Carcinoid tumour of the stomach [Recovered/Resolved with Sequelae]
  - Dyspepsia [Unknown]
  - Hypergastrinaemia [Unknown]
  - Enterochromaffin cell hyperplasia [Recovered/Resolved]
